FAERS Safety Report 8585504-2 (Version None)
Quarter: 2012Q3

REPORT INFORMATION
  Report Type: 
  Country: None (occurrence: None)
  Receive Date: 20120810
  Receipt Date: 20120731
  Transmission Date: 20120928
  Serious: Yes (Hospitalization)
  Sender: FDA-Public Use
  Company Number: US-BAYER-2012-045850

PATIENT
  Age: 41 Year
  Sex: Female

DRUGS (11)
  1. YAZ [Suspect]
  2. ASPIRIN [Concomitant]
     Dosage: 81 MG, DAILY
  3. PERCOCET [Concomitant]
     Dosage: 5-325 MG
  4. METHOTREXATE [Concomitant]
     Indication: CONNECTIVE TISSUE DISORDER
     Dosage: 2.5 MG, UNK
  5. IRON [Concomitant]
  6. HEMOCYTE PLUS [Concomitant]
     Dosage: DAILY
  7. MULTI-VITAMIN [Concomitant]
  8. VESICARE [Concomitant]
     Dosage: 5 MG, UNK
  9. YASMIN [Suspect]
  10. LYRICA [Concomitant]
     Indication: CONNECTIVE TISSUE DISORDER
     Dosage: 150 MG, UNK
  11. IBUPROFEN [Concomitant]
     Dosage: 600 MG, UNK

REACTIONS (9)
  - INJURY [None]
  - ANHEDONIA [None]
  - PULMONARY EMBOLISM [None]
  - PELVIC VENOUS THROMBOSIS [None]
  - EMOTIONAL DISTRESS [None]
  - QUALITY OF LIFE DECREASED [None]
  - FEAR [None]
  - PAIN [None]
  - ANXIETY [None]
